FAERS Safety Report 15452076 (Version 1)
Quarter: 2018Q4

REPORT INFORMATION
  Report Type: Spontaneous
  Country: CA (occurrence: CA)
  Receive Date: 20181001
  Receipt Date: 20181001
  Transmission Date: 20190204
  Serious: Yes (Other)
  Sender: FDA-Public Use
  Company Number: CA-PFIZER INC-2018390269

PATIENT
  Age: 4 Year
  Sex: Male
  Weight: 18.59 kg

DRUGS (1)
  1. CHILDRENS ADVIL [Suspect]
     Active Substance: IBUPROFEN
     Indication: PYREXIA
     Dosage: 9 ML, 1X/DAY
     Route: 048

REACTIONS (1)
  - Body temperature decreased [Recovered/Resolved]
